FAERS Safety Report 8197696-8 (Version None)
Quarter: 2012Q1

REPORT INFORMATION
  Report Type: 
  Country: None (occurrence: None)
  Receive Date: 20120309
  Receipt Date: 20120227
  Transmission Date: 20120608
  Serious: Yes (Hospitalization)
  Sender: FDA-Public Use
  Company Number: US-SANOFI-AVENTIS-2012SA009618

PATIENT
  Age: 76 Year
  Sex: Female
  Weight: 70 kg

DRUGS (2)
  1. LANTUS [Suspect]
     Dosage: DOSE:11 UNIT(S)
     Route: 058
     Dates: start: 20111101
  2. SOLOSTAR [Suspect]
     Dates: start: 20111101

REACTIONS (1)
  - TACHYCARDIA [None]
